FAERS Safety Report 13877898 (Version 1)
Quarter: 2017Q3

REPORT INFORMATION
  Report Type: Spontaneous
  Country: DE (occurrence: DE)
  Receive Date: 20170817
  Receipt Date: 20170817
  Transmission Date: 20171127
  Serious: Yes (Hospitalization)
  Sender: FDA-Public Use
  Company Number: GXKR2017DE004116

PATIENT
  Age: 47 Year
  Sex: Female

DRUGS (1)
  1. CETIRIZIN HEXAL [Suspect]
     Active Substance: CETIRIZINE HYDROCHLORIDE
     Indication: PANIC DISORDER
     Dosage: APPROX. 7 DROPS/DAY
     Route: 048
     Dates: end: 20170808

REACTIONS (9)
  - White blood cell count increased [Unknown]
  - Feeling abnormal [Unknown]
  - Heart rate irregular [Unknown]
  - Fear of death [Unknown]
  - Liver disorder [Unknown]
  - Fluid imbalance [Unknown]
  - Blood pressure fluctuation [Unknown]
  - Diarrhoea [Unknown]
  - Alanine aminotransferase increased [Unknown]
